FAERS Safety Report 25111908 (Version 1)
Quarter: 2025Q1

REPORT INFORMATION
  Report Type: Spontaneous
  Country: US (occurrence: US)
  Receive Date: 20250324
  Receipt Date: 20250324
  Transmission Date: 20250408
  Serious: Yes (Hospitalization, Other)
  Sender: AMGEN
  Company Number: US-AMGEN-USASP2025051862

PATIENT

DRUGS (1)
  1. RITUXIMAB [Suspect]
     Active Substance: RITUXIMAB
     Indication: Multiple sclerosis
     Route: 065

REACTIONS (16)
  - Escherichia infection [Unknown]
  - COVID-19 [Unknown]
  - Gastrointestinal infection [Unknown]
  - Streptococcal infection [Unknown]
  - Infection parasitic [Unknown]
  - Chronic obstructive pulmonary disease [Unknown]
  - Peritonitis [Unknown]
  - Cellulitis [Unknown]
  - Urinary tract infection [Unknown]
  - Sepsis [Unknown]
  - Pneumonia [Unknown]
  - Infection [Unknown]
  - Lower respiratory tract infection [Unknown]
  - Multiple sclerosis relapse [Unknown]
  - Unevaluable event [Unknown]
  - Off label use [Unknown]
